FAERS Safety Report 6060767-6 (Version None)
Quarter: 2009Q1

REPORT INFORMATION
  Report Type: 
  Country: None (occurrence: None)
  Receive Date: 20090202
  Receipt Date: 20090121
  Transmission Date: 20090719
  Serious: Yes (Disabling)
  Sender: FDA-Public Use
  Company Number: PHHY2009IT02564

PATIENT
  Sex: Female

DRUGS (11)
  1. ACLASTA [Suspect]
     Indication: OSTEOPOROSIS
     Dosage: 5 MG, ONCE/SINGLE
     Route: 042
     Dates: start: 20081229, end: 20081229
  2. CALCITRIOL [Concomitant]
     Dosage: 0.5 UG, UNK
  3. REMERON [Concomitant]
     Dosage: 30 MG, PER DAY
     Route: 048
  4. HALCION [Concomitant]
     Dosage: 125 MCG PER DAY
     Route: 048
  5. LASIX [Concomitant]
     Dosage: 25 MG PER DAY
     Route: 048
  6. COVERSYL [Concomitant]
     Dosage: 5 MG PER DAY
     Route: 048
  7. LANSOX [Concomitant]
     Dosage: 15 MG PER DAY
     Route: 048
  8. METOPROLOL [Concomitant]
     Dosage: 100 MG PER DAY
     Route: 048
  9. MEDROL [Concomitant]
     Indication: RHEUMATOID ARTHRITIS
     Dosage: 8 MG PER DAY
  10. ARANESP [Concomitant]
     Dosage: 20 MCG PER DAY
     Route: 058
  11. NIFEREX (POLYSACCHARIDE-IRON COMPLEX) [Concomitant]
     Dosage: 100 MG PER DAY
     Route: 048

REACTIONS (1)
  - MYOCARDIAL ISCHAEMIA [None]
